FAERS Safety Report 9207468 (Version 1)
Quarter: 2013Q1

REPORT INFORMATION
  Report Type: Spontaneous
  Country: US (occurrence: None)
  Receive Date: 20120817
  Receipt Date: 20120817
  Transmission Date: 20140127
  Serious: Yes (Hospitalization, Other)
  Sender: FDA-Public Use
  Company Number: ADR-2012-00752

PATIENT
  Sex: Male

DRUGS (6)
  1. BACLOFEN INTRATHECAL (BACLOFEN INJECTION) [Suspect]
     Indication: PAIN
  2. BACLOFEN INTRATHECAL (BACLOFEN INJECTION) [Suspect]
     Indication: BURNING SENSATION
  3. FENTANYL [Concomitant]
  4. DILAUDID [Concomitant]
  5. CLONIDINE [Concomitant]
  6. BUPIVACAINE [Concomitant]

REACTIONS (1)
  - Drug withdrawal syndrome [None]
